FAERS Safety Report 7878497-4 (Version None)
Quarter: 2011Q4

REPORT INFORMATION
  Report Type: 
  Country: None (occurrence: None)
  Receive Date: 20111028
  Receipt Date: 20111021
  Transmission Date: 20120403
  Serious: Yes (Hospitalization)
  Sender: FDA-Public Use
  Company Number: DKLU1071159

PATIENT
  Age: 10 Month
  Sex: Female

DRUGS (1)
  1. SABRIL [Suspect]
     Indication: PRODUCT USED FOR UNKNOWN INDICATION
     Dosage: SEE IMAGE
     Route: 048
     Dates: start: 20110401

REACTIONS (8)
  - TONGUE DISORDER [None]
  - VIRAL INFECTION [None]
  - LIP DISORDER [None]
  - HYPOPHAGIA [None]
  - TONGUE PARALYSIS [None]
  - FATIGUE [None]
  - HYPERSOMNIA [None]
  - NEUTROPENIA [None]
